FAERS Safety Report 13639456 (Version 1)
Quarter: 2017Q2

REPORT INFORMATION
  Report Type: Spontaneous
  Country: US (occurrence: US)
  Receive Date: 20170609
  Receipt Date: 20170609
  Transmission Date: 20170830
  Serious: No
  Sender: FDA-Public Use
  Company Number: US-ROCHE-719482

PATIENT
  Sex: Female
  Weight: 54.4 kg

DRUGS (3)
  1. KLONOPIN [Suspect]
     Active Substance: CLONAZEPAM
     Dosage: .25 MG IN THE AFTERNOON AND 0.5 MG AT BEDTIME.
     Route: 048
  2. KLONOPIN [Suspect]
     Active Substance: CLONAZEPAM
     Indication: ANXIETY
     Route: 048
  3. KLONOPIN [Suspect]
     Active Substance: CLONAZEPAM
     Dosage: OTHER INDICATION: PANIC ATTACKS
     Route: 048

REACTIONS (3)
  - Drug ineffective [Unknown]
  - Product counterfeit [Unknown]
  - Insomnia [Unknown]

NARRATIVE: CASE EVENT DATE: 2010
